FAERS Safety Report 15376553 (Version 3)
Quarter: 2024Q3

REPORT INFORMATION
  Report Type: Spontaneous
  Country: DE (occurrence: DE)
  Receive Date: 20180912
  Receipt Date: 20240912
  Transmission Date: 20241017
  Serious: Yes (Hospitalization, Disabling, Other)
  Sender: MERCK
  Company Number: DE-TORRENT-00009123

PATIENT
  Age: 52 Year
  Sex: Female

DRUGS (23)
  1. CASPOFUNGIN ACETATE [Suspect]
     Active Substance: CASPOFUNGIN ACETATE
     Indication: Product used for unknown indication
     Dosage: UNKNOWN
     Dates: start: 201307
  2. INFLIXIMAB [Suspect]
     Active Substance: INFLIXIMAB
     Dosage: ONCE
     Route: 042
     Dates: start: 201310
  3. VALGANCICLOVIR HYDROCHLORIDE [Suspect]
     Active Substance: VALGANCICLOVIR HYDROCHLORIDE
     Indication: Antiviral prophylaxis
     Dosage: UNKNOWN
     Dates: start: 201307
  4. VALGANCICLOVIR HYDROCHLORIDE [Suspect]
     Active Substance: VALGANCICLOVIR HYDROCHLORIDE
     Dosage: UNKNOWN
  5. VALGANCICLOVIR HYDROCHLORIDE [Suspect]
     Active Substance: VALGANCICLOVIR HYDROCHLORIDE
     Dosage: UNKNOWN
     Dates: start: 201312
  6. PREDNISOLONE [Suspect]
     Active Substance: PREDNISOLONE
     Indication: Immunosuppression
     Dosage: INTRAOPERATIVELY
     Dates: start: 201310, end: 201310
  7. PREDNISOLONE [Suspect]
     Active Substance: PREDNISOLONE
     Dosage: 1000 MG, INTRAOPERATIVELY
  8. PREDNISOLONE [Suspect]
     Active Substance: PREDNISOLONE
     Dosage: TAPERED DOWN TO MAINTENANCE DOSE OF 5 MG/D
     Dates: end: 201305
  9. TACROLIMUS [Suspect]
     Active Substance: TACROLIMUS
     Indication: Immunosuppression
     Dosage: TARGET TROUGH LEVEL 3-4 NG/MICROLITRE
     Dates: start: 201309, end: 201312
  10. TACROLIMUS [Suspect]
     Active Substance: TACROLIMUS
     Indication: Prophylaxis against transplant rejection
     Dosage: INITIAL TARGET TROUGH LEVEL 8?10 AND 6?7 NG/MICROLITRES
     Dates: end: 201305
  11. TACROLIMUS [Suspect]
     Active Substance: TACROLIMUS
     Dosage: UNKNOWN
     Dates: start: 201306, end: 201308
  12. MYCOPHENOLATE MOFETIL [Suspect]
     Active Substance: MYCOPHENOLATE MOFETIL
     Indication: Immunosuppression
     Dosage: 2000 MG / DAY
     Dates: end: 201305
  13. MYCOPHENOLATE MOFETIL [Suspect]
     Active Substance: MYCOPHENOLATE MOFETIL
     Indication: Prophylaxis against transplant rejection
  14. GANCICLOVIR [Suspect]
     Active Substance: GANCICLOVIR
     Indication: Antiviral prophylaxis
     Dosage: 5 MILLIGRAM/KILOGRAM
     Route: 042
  15. GANCICLOVIR [Suspect]
     Active Substance: GANCICLOVIR
     Indication: Antiviral prophylaxis
     Dosage: UNKNOWN
     Route: 042
     Dates: start: 201307, end: 201312
  16. GANCICLOVIR [Suspect]
     Active Substance: GANCICLOVIR
     Dosage: 5 MILLIGRAM/KILOGRAM
     Route: 042
  17. ALEMTUZUMAB [Suspect]
     Active Substance: ALEMTUZUMAB
     Indication: Immunosuppression
     Dosage: D 0 AND 1
     Dates: end: 201305
  18. ALEMTUZUMAB [Suspect]
     Active Substance: ALEMTUZUMAB
     Indication: Prophylaxis against transplant rejection
  19. EVEROLIMUS [Suspect]
     Active Substance: EVEROLIMUS
     Indication: Immunosuppression
     Dosage: TARGET TROUGH LEVEL2-3 NG/MICROLITRE
     Dates: start: 201309, end: 201312
  20. FOSCARNET SODIUM [Suspect]
     Active Substance: FOSCARNET SODIUM
     Indication: Antiviral prophylaxis
     Dosage: UNKNOWN
     Dates: start: 201309
  21. VALGANCICLOVIR HYDROCHLORIDE [Suspect]
     Active Substance: VALGANCICLOVIR HYDROCHLORIDE
     Indication: Antiviral prophylaxis
     Dosage: UNKNOWN
  22. VALGANCICLOVIR HYDROCHLORIDE [Suspect]
     Active Substance: VALGANCICLOVIR HYDROCHLORIDE
     Dosage: UNKNOWN
     Dates: start: 201307
  23. VALGANCICLOVIR HYDROCHLORIDE [Suspect]
     Active Substance: VALGANCICLOVIR HYDROCHLORIDE
     Dosage: UNKNOWN
     Dates: start: 201312

REACTIONS (10)
  - Oesophageal candidiasis [Recovered/Resolved]
  - Cytomegalovirus infection [Recovered/Resolved]
  - Cytomegalovirus oesophagitis [Recovered/Resolved]
  - Cytomegalovirus gastritis [Unknown]
  - Leukaemia [Unknown]
  - Transplant rejection [Unknown]
  - Drug ineffective [Unknown]
  - Organ failure [Unknown]
  - Gastritis [Unknown]
  - Cytomegalovirus oesophagitis [Recovered/Resolved]
